FAERS Safety Report 6145098-8 (Version None)
Quarter: 2009Q2

REPORT INFORMATION
  Report Type: 
  Country: None (occurrence: None)
  Receive Date: 20090406
  Receipt Date: 20090223
  Transmission Date: 20091009
  Serious: No
  Sender: FDA-Public Use
  Company Number: A0769783A

PATIENT
  Age: 49 Year
  Sex: Male

DRUGS (5)
  1. ADVAIR HFA [Suspect]
     Indication: ASTHMA
     Route: 055
  2. ADVAIR HFA [Suspect]
     Route: 055
  3. ALLERGY MEDICATION [Concomitant]
  4. VENTOLIN [Concomitant]
  5. CITALOPRAM [Concomitant]

REACTIONS (3)
  - DRUG INEFFECTIVE [None]
  - DYSPNOEA [None]
  - PRODUCT QUALITY ISSUE [None]
